FAERS Safety Report 7397599-2 (Version None)
Quarter: 2011Q2

REPORT INFORMATION
  Report Type: 
  Country: None (occurrence: None)
  Receive Date: 20110406
  Receipt Date: 20110404
  Transmission Date: 20111010
  Serious: Yes (Life-Threatening)
  Sender: FDA-Public Use
  Company Number: IT-MERCK-1103ITA00038

PATIENT
  Age: 80 Year
  Sex: Female

DRUGS (8)
  1. BROMAZEPAM [Suspect]
     Route: 048
     Dates: start: 20110301, end: 20110302
  2. PREDNISONE [Concomitant]
     Route: 048
  3. FOSAMAX [Suspect]
     Indication: OSTEOPOROSIS
     Route: 048
     Dates: start: 20110223, end: 20110302
  4. LERCANIDIPINE HYDROCHLORIDE [Concomitant]
     Route: 065
  5. GLIMEPIRIDE [Concomitant]
     Route: 048
  6. METFORMIN [Concomitant]
     Route: 065
  7. LANSOPRAZOLE [Concomitant]
     Route: 048
  8. TORSEMIDE [Concomitant]
     Route: 048

REACTIONS (3)
  - AGRANULOCYTOSIS [None]
  - SEPSIS [None]
  - SYSTEMIC INFLAMMATORY RESPONSE SYNDROME [None]
